FAERS Safety Report 16502699 (Version 1)
Quarter: 2019Q3

REPORT INFORMATION
  Report Type: Spontaneous
  Country: BE (occurrence: BE)
  Receive Date: 20190701
  Receipt Date: 20190701
  Transmission Date: 20191004
  Serious: Yes (Other)
  Sender: FDA-Public Use
  Company Number: PHHY2019BE081259

PATIENT
  Age: 52 Year
  Sex: Female

DRUGS (2)
  1. AMOXICILLIN. [Suspect]
     Active Substance: AMOXICILLIN
     Indication: PRODUCT USED FOR UNKNOWN INDICATION
     Dosage: UNK
     Route: 065
  2. ALEMTUZUMAB [Suspect]
     Active Substance: ALEMTUZUMAB
     Indication: MULTIPLE SCLEROSIS
     Dosage: UNK
     Route: 041

REACTIONS (7)
  - Laryngitis [Recovered/Resolved]
  - Asthenia [Unknown]
  - Musculoskeletal disorder [Recovering/Resolving]
  - Multiple sclerosis relapse [Recovering/Resolving]
  - Limb discomfort [Unknown]
  - Gastrointestinal disorder [Recovering/Resolving]
  - Rash generalised [Recovered/Resolved]

NARRATIVE: CASE EVENT DATE: 201903
